FAERS Safety Report 4510967-9 (Version None)
Quarter: 2004Q4

REPORT INFORMATION
  Report Type: 
  Country: None (occurrence: None)
  Receive Date: 20040928
  Receipt Date: 20040607
  Transmission Date: 20050328
  Serious: No
  Sender: FDA-Public Use
  Company Number: 04P-163-0263100-00

PATIENT
  Age: 59 Year
  Sex: Female
  Weight: 85.2762 kg

DRUGS (9)
  1. HUMIRA [Suspect]
     Indication: RHEUMATOID ARTHRITIS
     Dosage: 40 MG, SUBCUTANEOUS
     Route: 058
     Dates: start: 20040528
  2. METHOTREXATE [Concomitant]
  3. FOLINIC ACID [Concomitant]
  4. SULFASALAZINE [Concomitant]
  5. CELECOXIB [Concomitant]
  6. HYDROCHLOROTHIAZIDE [Concomitant]
  7. PREDNISONE [Concomitant]
  8. RANITIDINE [Concomitant]
  9. RISEDRONATE SODIUM [Concomitant]

REACTIONS (2)
  - CONDITION AGGRAVATED [None]
  - RHEUMATOID ARTHRITIS [None]
